FAERS Safety Report 12401804 (Version 2)
Quarter: 2016Q2

REPORT INFORMATION
  Report Type: Spontaneous
  Country: US (occurrence: US)
  Receive Date: 20160525
  Receipt Date: 20160530
  Transmission Date: 20160815
  Serious: No
  Sender: FDA-Public Use
  Company Number: US-PFIZER INC-2016260547

PATIENT
  Sex: Male

DRUGS (1)
  1. COLESTIPOL HCL [Suspect]
     Active Substance: COLESTIPOL HYDROCHLORIDE
     Dosage: 2 DF, 2X/DAY (TWO IN THE MORNING AND TWO AT NIGHT)

REACTIONS (2)
  - Bone disorder [Unknown]
  - Joint swelling [Recovering/Resolving]
